FAERS Safety Report 9674439 (Version 2)
Quarter: 2013Q4

REPORT INFORMATION
  Report Type: Spontaneous
  Country: GB (occurrence: GB)
  Receive Date: 20131107
  Receipt Date: 20131107
  Transmission Date: 20140711
  Serious: Yes (Hospitalization)
  Sender: FDA-Public Use
  Company Number: PHHY2013GB076478

PATIENT
  Age: 86 Year
  Sex: Male

DRUGS (11)
  1. PERINDOPRIL-ERBUMIN 1 A PHARMA [Suspect]
     Dosage: 8 MG, UNK
     Route: 048
     Dates: end: 20110414
  2. FUROSEMIDE [Suspect]
     Dosage: 40 MG, QD ONE IN THE MORNING
  3. FUROSEMIDE [Suspect]
     Dosage: 20 MG, (PATIENT SAYS DID NOT TAKE. TAKEN AS NEEDED. ACUTE - ONTOP OF USUAL 40MG)
  4. CO-AMILORIDE [Suspect]
  5. DIGOXIN [Concomitant]
     Dosage: 125 UG, QD
  6. FERROUS SULPHATE [Concomitant]
     Dosage: 200 MG, BID
  7. WARFARIN [Concomitant]
  8. CO-CODAMOL [Concomitant]
  9. LANSOPRAZOLE [Concomitant]
     Dosage: 15 MG, QD
  10. GOSERELIN [Concomitant]
  11. HYDROXOCOBALAMIN [Concomitant]

REACTIONS (1)
  - Renal failure acute [Recovered/Resolved]
